FAERS Safety Report 19861601 (Version 1)
Quarter: 2021Q3

REPORT INFORMATION
  Report Type: Spontaneous
  Country: US (occurrence: US)
  Receive Date: 20210920
  Receipt Date: 20210920
  Transmission Date: 20211014
  Serious: No
  Sender: FDA-Public Use
  Company Number: US-PFIZER INC-2021300012

PATIENT
  Age: 71 Year
  Sex: Female

DRUGS (1)
  1. ALPRAZOLAM. [Suspect]
     Active Substance: ALPRAZOLAM
     Dosage: UNK

REACTIONS (5)
  - Palpitations [Unknown]
  - Product dispensing error [Unknown]
  - Wrong product administered [Unknown]
  - Electrocardiogram abnormal [Unknown]
  - Drug ineffective [Unknown]
